FAERS Safety Report 20154149 (Version 1)
Quarter: 2021Q4

REPORT INFORMATION
  Report Type: Spontaneous
  Country: FR (occurrence: FR)
  Receive Date: 20211207
  Receipt Date: 20211207
  Transmission Date: 20220303
  Serious: Yes (Hospitalization, Other)
  Sender: FDA-Public Use
  Company Number: FR-AFSSAPS-LM20213675

PATIENT
  Age: 64 Year
  Sex: Male
  Weight: 80 kg

DRUGS (2)
  1. CARBOPLATIN [Suspect]
     Active Substance: CARBOPLATIN
     Indication: Peritoneal mesothelioma malignant
     Dosage: 539 MILLIGRAM, CYCLICAL
     Route: 042
     Dates: start: 20210318, end: 20210706
  2. ALIMTA [Suspect]
     Active Substance: PEMETREXED DISODIUM
     Indication: Peritoneal mesothelioma malignant
     Dosage: 995 MILLIGRAM, CYCLICAL (6 CURES IN TOTAL)
     Route: 042
     Dates: start: 20210318, end: 20210706

REACTIONS (1)
  - Hypersensitivity pneumonitis [Not Recovered/Not Resolved]

NARRATIVE: CASE EVENT DATE: 20210301
